FAERS Safety Report 20582951 (Version 1)
Quarter: 2022Q1

REPORT INFORMATION
  Report Type: Spontaneous
  Country: US (occurrence: None)
  Receive Date: 20220311
  Receipt Date: 20220311
  Transmission Date: 20220423
  Serious: Yes (Other)
  Sender: FDA-Public Use
  Company Number: None

PATIENT
  Age: 82 Year
  Sex: Male
  Weight: 60.75 kg

DRUGS (1)
  1. IMIPRAMINE [Suspect]
     Active Substance: IMIPRAMINE
     Indication: Depression
     Dosage: OTHER QUANTITY : 3 3;?FREQUENCY : AT BEDTIME;?
     Route: 048

REACTIONS (5)
  - Somnolence [None]
  - Memory impairment [None]
  - Irritability [None]
  - Product substitution issue [None]
  - Product colour issue [None]

NARRATIVE: CASE EVENT DATE: 20220310
